FAERS Safety Report 12665790 (Version 2)
Quarter: 2017Q1

REPORT INFORMATION
  Report Type: Report from Study
  Country: US (occurrence: US)
  Receive Date: 20160818
  Receipt Date: 20170222
  Transmission Date: 20170428
  Serious: Yes (Hospitalization, Other)
  Sender: FDA-Public Use
  Company Number: PHEH2014US017794

PATIENT
  Age: 43 Year
  Sex: Female
  Weight: 70.75 kg

DRUGS (1)
  1. GILENYA [Suspect]
     Active Substance: FINGOLIMOD HYDROCHLORIDE
     Indication: MULTIPLE SCLEROSIS
     Dosage: 0.5 MG, QD
     Route: 048
     Dates: start: 20140611, end: 2016

REACTIONS (9)
  - Asthenia [Unknown]
  - Multiple sclerosis [Unknown]
  - Visual impairment [Not Recovered/Not Resolved]
  - Dysgraphia [Unknown]
  - Spinal pain [Recovered/Resolved]
  - Multiple sclerosis relapse [Unknown]
  - Movement disorder [Unknown]
  - Vision blurred [Unknown]
  - Dyspnoea [Unknown]

NARRATIVE: CASE EVENT DATE: 201408
